FAERS Safety Report 15292312 (Version 1)
Quarter: 2018Q4

REPORT INFORMATION
  Report Type: Spontaneous
  Country: FR (occurrence: FR)
  Receive Date: 20180818
  Receipt Date: 20180818
  Transmission Date: 20190204
  Serious: Yes (Life-Threatening, Hospitalization, Other)
  Sender: FDA-Public Use
  Company Number: FR-AUROBINDO-AUR-APL-2017-45739

PATIENT
  Age: 57 Year
  Sex: Male
  Weight: 75 kg

DRUGS (40)
  1. FLUOROURACIL. [Suspect]
     Active Substance: FLUOROURACIL
     Dosage: UNK, CYCLIC, EVERY 14 DAYS (SIX CYCLES) () ; CYCLICAL
     Route: 042
     Dates: start: 20170210, end: 20170723
  2. FLUOROURACIL. [Suspect]
     Active Substance: FLUOROURACIL
     Dosage: UNK, CYCLIC, EVERY 14 DAYS (SIX CYCLES) ()
     Route: 042
     Dates: start: 20170201, end: 20170721
  3. INSULIN [Concomitant]
     Active Substance: INSULIN NOS
     Dosage: UNK ()
  4. INSULIN [Concomitant]
     Active Substance: INSULIN NOS
     Dosage: UNK ()
  5. INSULIN [Concomitant]
     Active Substance: INSULIN NOS
     Dosage: UNK ()
  6. INSULIN [Concomitant]
     Active Substance: INSULIN NOS
     Dosage: UNK ()
  7. OXALIPLATIN. [Suspect]
     Active Substance: OXALIPLATIN
     Dosage: UNK, CYCLIC, EVERY 14 DAYS (SIX CYCLES) () ; CYCLICAL
     Route: 042
     Dates: start: 20170210, end: 20170723
  8. FOLINIC ACID [Suspect]
     Active Substance: LEUCOVORIN
     Indication: PANCREATIC NEUROENDOCRINE TUMOUR METASTATIC
     Dosage: UNK, CYCLIC, ONLY 1 CYCLE VERY 14 DAYS () ; CYCLICAL
     Route: 016
     Dates: start: 20170724
  9. FOLINIC ACID [Suspect]
     Active Substance: LEUCOVORIN
     Dosage: UNK, CYCLIC, EVERY 14 DAYS (SIX CYCLES) ()
     Route: 042
     Dates: start: 20170201, end: 20170721
  10. FOLINIC ACID [Suspect]
     Active Substance: LEUCOVORIN
     Dosage: UNK, CYCLIC, EVERY 14 DAYS (SIX CYCLES) () ; CYCLICAL
     Route: 042
     Dates: start: 20170210, end: 20170723
  11. FOLINIC ACID [Suspect]
     Active Substance: LEUCOVORIN
     Dosage: UNK, CYCLIC, EVERY 14 DAYS (SIX CYCLES)
     Route: 065
     Dates: start: 20170201, end: 20170723
  12. INSULIN [Concomitant]
     Active Substance: INSULIN NOS
     Dosage: UN
  13. INSULIN [Concomitant]
     Active Substance: INSULIN NOS
     Dosage: UNK ()
  14. INSULIN [Concomitant]
     Active Substance: INSULIN NOS
     Dosage: UNK ()
  15. INSULIN [Concomitant]
     Active Substance: INSULIN NOS
     Dosage: UNK ()
  16. FOLINIC ACID [Suspect]
     Active Substance: LEUCOVORIN
     Indication: NEUROENDOCRINE TUMOUR
     Dosage: 1 CYCLE VERY 14 DAYS (SIX CYCLES) ()
     Route: 042
     Dates: start: 20170130, end: 20170723
  17. FLUOROURACIL. [Suspect]
     Active Substance: FLUOROURACIL
     Indication: NEUROENDOCRINE TUMOUR
     Dosage: UNK, CYCLIC (ONLY 1 CYCLE, EVERY 14 DAYS) () ; CYCLICAL
     Route: 065
     Dates: start: 20170724
  18. FLUOROURACIL. [Suspect]
     Active Substance: FLUOROURACIL
     Dosage: UNK, CYCLIC (1 CYCLE EVERY 14 DAYS) () ; CYCLICAL
     Route: 042
     Dates: start: 20170724, end: 20171006
  19. INSULIN [Concomitant]
     Active Substance: INSULIN NOS
     Dosage: UNK ()
  20. XELODA [Concomitant]
     Active Substance: CAPECITABINE
     Indication: CHEMOTHERAPY
     Dosage: UNK
     Route: 048
     Dates: start: 20171026
  21. FOLINIC ACID [Suspect]
     Active Substance: LEUCOVORIN
     Dosage: UNK, CYCLIC (1 CYCLE VERY 14 DAYS) () ; CYCLICAL
     Route: 042
     Dates: start: 20170724, end: 20171006
  22. FOLINIC ACID [Suspect]
     Active Substance: LEUCOVORIN
     Dosage: UNK, CYCLIC, ONLY 1 CYCLE EVERY 14 DAYS ()
     Route: 065
     Dates: start: 20170724, end: 20171001
  23. FLUOROURACIL. [Suspect]
     Active Substance: FLUOROURACIL
     Dosage: UNK, CYCLIC, EVERY 14 DAYS (SIX CYCLES) ()
     Route: 042
     Dates: start: 20170130, end: 20170723
  24. SUTENT [Suspect]
     Active Substance: SUNITINIB MALATE
     Indication: PANCREATIC NEUROENDOCRINE TUMOUR METASTATIC
     Dosage: 37.5 MG, DAILY
     Route: 065
     Dates: start: 20151207, end: 20170116
  25. INSULIN [Concomitant]
     Active Substance: INSULIN NOS
     Dosage: UNK ()
  26. INSULIN [Concomitant]
     Active Substance: INSULIN NOS
     Dosage: UNK ()
  27. INSULIN [Concomitant]
     Active Substance: INSULIN NOS
     Dosage: UNK ()
  28. INSULIN [Concomitant]
     Active Substance: INSULIN NOS
     Dosage: UNK ()
  29. XELODA [Concomitant]
     Active Substance: CAPECITABINE
     Indication: NEOPLASM PROGRESSION
     Dosage: UNK
     Route: 048
  30. OXALIPLATIN. [Suspect]
     Active Substance: OXALIPLATIN
     Indication: PANCREATIC NEUROENDOCRINE TUMOUR METASTATIC
     Dosage: UNK, CYCLIC, EVERY 14 DAYS (SIX CYCLES) ()
     Route: 065
     Dates: start: 20170201, end: 20170723
  31. OXALIPLATIN. [Suspect]
     Active Substance: OXALIPLATIN
     Indication: NEUROENDOCRINE TUMOUR
     Dosage: UNK
     Route: 042
     Dates: start: 20170130, end: 20170723
  32. INSULIN [Concomitant]
     Active Substance: INSULIN NOS
     Indication: TYPE 2 DIABETES MELLITUS
     Dosage: UNK
  33. INSULIN [Concomitant]
     Active Substance: INSULIN NOS
     Dosage: UNK ()
  34. INSULIN [Concomitant]
     Active Substance: INSULIN NOS
     Dosage: UNK ()
  35. OXALIPLATIN. [Suspect]
     Active Substance: OXALIPLATIN
     Dosage: UNK
     Route: 042
     Dates: start: 20170201, end: 20170721
  36. FLUOROURACIL. [Suspect]
     Active Substance: FLUOROURACIL
     Indication: PANCREATIC NEUROENDOCRINE TUMOUR METASTATIC
     Dosage: UNK, CYCLIC, EVERY 14 DAYS (SIX CYCLES) () ; CYCLICAL
     Route: 065
     Dates: start: 20170201, end: 20170723
  37. INSULIN [Concomitant]
     Active Substance: INSULIN NOS
     Dosage: UNK ()
  38. INSULIN [Concomitant]
     Active Substance: INSULIN NOS
     Dosage: UNK ()
  39. INSULIN [Concomitant]
     Active Substance: INSULIN NOS
     Dosage: UNK ()
  40. CAPECITABINE. [Concomitant]
     Active Substance: CAPECITABINE
     Indication: NEOPLASM PROGRESSION
     Dosage: UNK
     Route: 048
     Dates: start: 201710

REACTIONS (13)
  - Small intestinal obstruction [Recovered/Resolved]
  - Hypokalaemia [Recovered/Resolved]
  - Vomiting [Recovered/Resolved]
  - Intestinal obstruction [Recovered/Resolved]
  - Hypoglycaemia [Recovered/Resolved]
  - Blood calcium abnormal [Not Recovered/Not Resolved]
  - Sepsis [Recovered/Resolved]
  - Diarrhoea [Recovered/Resolved]
  - Abdominal pain [Recovered/Resolved]
  - Hypercalcaemia [Not Recovered/Not Resolved]
  - Endocarditis [Recovered/Resolved]
  - Paraesthesia [Recovered/Resolved]
  - General physical health deterioration [Recovered/Resolved]

NARRATIVE: CASE EVENT DATE: 2016
